FAERS Safety Report 21872576 (Version 1)
Quarter: 2023Q1

REPORT INFORMATION
  Report Type: Spontaneous
  Country: US (occurrence: None)
  Receive Date: 20230114
  Receipt Date: 20230114
  Transmission Date: 20230418
  Serious: Yes (Hospitalization)
  Sender: FDA-Public Use
  Company Number: None

PATIENT
  Age: 72 Year
  Sex: Female
  Weight: 85.73 kg

DRUGS (7)
  1. LENALIDOMIDE [Suspect]
     Active Substance: LENALIDOMIDE
     Indication: Plasma cell myeloma
     Dosage: 10MG  2W, 1W OFF ORAL?
     Route: 048
  2. ACYCLOVIR [Concomitant]
     Active Substance: ACYCLOVIR
  3. BORTEZOMIB [Concomitant]
     Active Substance: BORTEZOMIB
  4. DARZALEX [Concomitant]
     Active Substance: DARATUMUMAB
  5. DILTIAZEM [Concomitant]
     Active Substance: DILTIAZEM
  6. VITAMIN D [Concomitant]
     Active Substance: VITAMIN D NOS
  7. XARELTO [Concomitant]
     Active Substance: RIVAROXABAN

REACTIONS (1)
  - Herpes zoster [None]
